FAERS Safety Report 11057901 (Version 1)
Quarter: 2015Q2

REPORT INFORMATION
  Report Type: Report from Study
  Country: US (occurrence: US)
  Receive Date: 20150423
  Receipt Date: 20150423
  Transmission Date: 20150821
  Serious: Yes (Other)
  Sender: FDA-Public Use
  Company Number: US-GILEAD-2015-0143351

PATIENT
  Age: 54 Year
  Sex: Female

DRUGS (3)
  1. WARFARIN [Concomitant]
     Active Substance: WARFARIN
  2. ORENITRAM [Concomitant]
     Active Substance: TREPROSTINIL
  3. AMBRISENTAN [Suspect]
     Active Substance: AMBRISENTAN
     Indication: PRODUCT USED FOR UNKNOWN INDICATION
     Dosage: 10 MG, QD
     Route: 065
     Dates: start: 20070823

REACTIONS (7)
  - Fatigue [Unknown]
  - Dyspnoea [Unknown]
  - Thyroid neoplasm [Unknown]
  - Pain in extremity [Unknown]
  - Headache [Unknown]
  - Weight increased [Unknown]
  - Blood calcium increased [Unknown]
